FAERS Safety Report 21678391 (Version 1)
Quarter: 2022Q4

REPORT INFORMATION
  Report Type: Spontaneous
  Country: US (occurrence: US)
  Receive Date: 20221203
  Receipt Date: 20221203
  Transmission Date: 20230113
  Serious: Yes (Death)
  Sender: FDA-Public Use
  Company Number: US-002147023-NVSC2022US280365

PATIENT
  Age: 72 Year
  Sex: Male

DRUGS (1)
  1. DIGOXIN [Suspect]
     Active Substance: DIGOXIN
     Indication: Product used for unknown indication
     Dosage: UNK
     Route: 065

REACTIONS (13)
  - Hypotension [Fatal]
  - Bradycardia [Fatal]
  - Ventricular arrhythmia [Fatal]
  - Electrocardiogram QRS complex prolonged [Fatal]
  - Atrioventricular block [Fatal]
  - Myocardial injury [Fatal]
  - Myocardial ischaemia [Fatal]
  - Coma [Fatal]
  - Depressed level of consciousness [Fatal]
  - Metabolic acidosis [Fatal]
  - Anion gap abnormal [Fatal]
  - Acute kidney injury [Fatal]
  - Cardiac arrest [Fatal]
